FAERS Safety Report 4736806-9 (Version None)
Quarter: 2005Q3

REPORT INFORMATION
  Report Type: 
  Country: None (occurrence: None)
  Receive Date: 20050808
  Receipt Date: 20050719
  Transmission Date: 20060218
  Serious: Yes (Death, Other)
  Sender: FDA-Public Use
  Company Number: US-MERCK-0507USA03127

PATIENT
  Age: 61 Year
  Sex: Male

DRUGS (5)
  1. VIOXX [Suspect]
     Indication: BACK PAIN
     Route: 048
     Dates: end: 20030701
  2. VIOXX [Suspect]
     Route: 048
     Dates: end: 20030701
  3. VIOXX [Suspect]
     Indication: ARTHRITIS
     Route: 048
     Dates: end: 20030701
  4. VIOXX [Suspect]
     Route: 048
     Dates: end: 20030701
  5. BEXTRA [Suspect]
     Route: 065
     Dates: start: 20030421

REACTIONS (4)
  - CARDIAC FAILURE CONGESTIVE [None]
  - CARDIO-RESPIRATORY ARREST [None]
  - INJURY [None]
  - SUDDEN CARDIAC DEATH [None]
